FAERS Safety Report 17507761 (Version 1)
Quarter: 2020Q1

REPORT INFORMATION
  Report Type: Spontaneous
  Country: AU (occurrence: AU)
  Receive Date: 20200306
  Receipt Date: 20200306
  Transmission Date: 20200409
  Serious: No
  Sender: FDA-Public Use
  Company Number: AU-009507513-2002AUS010377

PATIENT
  Sex: Female

DRUGS (1)
  1. NOVASONE [Suspect]
     Active Substance: MOMETASONE FUROATE
     Dosage: UNK

REACTIONS (3)
  - Incorrect route of product administration [Unknown]
  - Product prescribing issue [Unknown]
  - Ear pain [Unknown]
